FAERS Safety Report 6129144-3 (Version None)
Quarter: 2009Q1

REPORT INFORMATION
  Report Type: 
  Country: None (occurrence: None)
  Receive Date: 20090323
  Receipt Date: 20090323
  Transmission Date: 20090719
  Serious: No
  Sender: FDA-Public Use
  Company Number: None

PATIENT

DRUGS (2)
  1. HALOPERIDOL 5MG/ML BEDFORD LABS [Suspect]
     Dosage: 1ML IM
     Route: 030
  2. CYANOCOBALAMIN [Suspect]
     Dosage: 1 ML IM
     Route: 030

REACTIONS (2)
  - CIRCUMSTANCE OR INFORMATION CAPABLE OF LEADING TO MEDICATION ERROR [None]
  - MEDICATION ERROR [None]
